FAERS Safety Report 9663593 (Version 1)
Quarter: 2013Q4

REPORT INFORMATION
  Report Type: Spontaneous
  Country: US (occurrence: US)
  Receive Date: 20131101
  Receipt Date: 20131101
  Transmission Date: 20140711
  Serious: No
  Sender: FDA-Public Use
  Company Number: US-ENDO PHARMACEUTICALS INC.-CLOZ20120020

PATIENT
  Sex: Female
  Weight: 72.64 kg

DRUGS (3)
  1. CLONAZEPAM 0.5MG [Suspect]
     Indication: CONVULSION
     Route: 048
     Dates: start: 2012
  2. DEPAKOTE ER [Concomitant]
     Indication: CONVULSION
     Route: 065
  3. CARBATROL [Concomitant]
     Indication: CONVULSION
     Route: 065

REACTIONS (1)
  - Drug ineffective [Not Recovered/Not Resolved]
